FAERS Safety Report 17726924 (Version 1)
Quarter: 2020Q2

REPORT INFORMATION
  Report Type: Spontaneous
  Country: US (occurrence: US)
  Receive Date: 20200430
  Receipt Date: 20200430
  Transmission Date: 20200714
  Serious: Yes (Death, Disabling, Other)
  Sender: FDA-Public Use
  Company Number: US-SA-2020SA112102

PATIENT
  Sex: Male

DRUGS (1)
  1. ZANTAC [Suspect]
     Active Substance: RANITIDINE HYDROCHLORIDE
     Dosage: UNK
     Route: 065
     Dates: start: 2000, end: 2018

REACTIONS (6)
  - Disability [Unknown]
  - Anxiety [Unknown]
  - Deformity [Unknown]
  - Impaired quality of life [Unknown]
  - Pain [Unknown]
  - Bladder cancer [Fatal]

NARRATIVE: CASE EVENT DATE: 201812
